FAERS Safety Report 25521994 (Version 3)
Quarter: 2025Q4

REPORT INFORMATION
  Report Type: Spontaneous
  Country: IL (occurrence: IL)
  Receive Date: 20250706
  Receipt Date: 20251027
  Transmission Date: 20260118
  Serious: Yes (Hospitalization, Other)
  Sender: JOHNSON AND JOHNSON
  Company Number: IL-JNJFOC-20250636114

PATIENT
  Age: 76 Year
  Sex: Female

DRUGS (1)
  1. TALVEY [Suspect]
     Active Substance: TALQUETAMAB-TGVS
     Indication: Plasma cell myeloma
     Route: 058
     Dates: start: 20230829, end: 20250501

REACTIONS (4)
  - Cerebral disorder [Unknown]
  - Cognitive disorder [Unknown]
  - Language disorder [Recovering/Resolving]
  - Ataxia [Unknown]

NARRATIVE: CASE EVENT DATE: 20250501
